FAERS Safety Report 5174313-2 (Version None)
Quarter: 2006Q4

REPORT INFORMATION
  Report Type: 
  Country: None (occurrence: None)
  Receive Date: 20061206
  Receipt Date: 20061124
  Transmission Date: 20070319
  Serious: Yes (Life-Threatening, Hospitalization)
  Sender: FDA-Public Use
  Company Number: 2471

PATIENT
  Age: 48 Year
  Sex: Female
  Weight: 107.0489 kg

DRUGS (5)
  1. AVINZA [Suspect]
     Indication: PAIN
     Dosage: 30 MG DAILY PO
     Route: 048
     Dates: start: 20061001, end: 20061025
  2. AVINZA [Suspect]
     Indication: PAIN
     Dosage: 60 MG DAILY PO
     Route: 048
     Dates: start: 20061026, end: 20061030
  3. BENAZEPRIL HYDROCHLORIDE [Concomitant]
  4. FUROSEMIDE [Concomitant]
  5. VENLAFAXINE HCL [Concomitant]

REACTIONS (7)
  - CARDIAC ARREST [None]
  - DYSARTHRIA [None]
  - HAEMORRHAGE [None]
  - RENAL FAILURE [None]
  - SEPSIS [None]
  - SOMNOLENCE [None]
  - THROMBOSIS [None]
